FAERS Safety Report 4719418-2 (Version None)
Quarter: 2005Q3

REPORT INFORMATION
  Report Type: 
  Country: None (occurrence: None)
  Receive Date: 20050721
  Receipt Date: 20050503
  Transmission Date: 20060218
  Serious: No
  Sender: FDA-Public Use
  Company Number: US-BRISTOL-MYERS SQUIBB COMPANY-12953733

PATIENT
  Age: 42 Year
  Sex: Female
  Weight: 59 kg

DRUGS (6)
  1. ESTRACE [Suspect]
     Indication: MENOPAUSAL SYMPTOMS
     Route: 048
     Dates: start: 20010101, end: 20041201
  2. PROMETRIUM [Concomitant]
     Dates: start: 20010101
  3. CENTRUM [Concomitant]
  4. ASCORBIC ACID [Concomitant]
  5. FLAXSEED OIL [Concomitant]
  6. TUMS [Concomitant]

REACTIONS (5)
  - DYSPEPSIA [None]
  - FEELING ABNORMAL [None]
  - HOT FLUSH [None]
  - OESTRADIOL DECREASED [None]
  - SYNCOPE [None]
